FAERS Safety Report 8175536-0 (Version None)
Quarter: 2012Q1

REPORT INFORMATION
  Report Type: 
  Country: None (occurrence: None)
  Receive Date: 20120229
  Receipt Date: 20110518
  Transmission Date: 20120608
  Serious: No
  Sender: FDA-Public Use
  Company Number: US-ABBOTT-11P-163-0727414-00

PATIENT
  Sex: Male

DRUGS (1)
  1. VALPROIC ACID SYRUP [Suspect]
     Indication: PETIT MAL EPILEPSY
     Dates: start: 19960101, end: 19990101

REACTIONS (4)
  - FEELING ABNORMAL [None]
  - ASTHENIA [None]
  - DECREASED APPETITE [None]
  - DIZZINESS [None]
